FAERS Safety Report 14021347 (Version 1)
Quarter: 2017Q3

REPORT INFORMATION
  Report Type: Spontaneous
  Country: US (occurrence: US)
  Receive Date: 20170928
  Receipt Date: 20170928
  Transmission Date: 20171128
  Serious: Yes (Death, Other)
  Sender: FDA-Public Use
  Company Number: US-ELI_LILLY_AND_COMPANY-US201709008646

PATIENT
  Sex: Female

DRUGS (2)
  1. AVASTIN [Concomitant]
     Active Substance: BEVACIZUMAB
     Dosage: UNK, UNKNOWN
     Route: 065
     Dates: start: 20170117
  2. ALIMTA [Suspect]
     Active Substance: PEMETREXED DISODIUM
     Indication: OVARIAN CANCER STAGE IV
     Dosage: UNK, UNKNOWN
     Route: 065
     Dates: start: 20170117, end: 201706

REACTIONS (4)
  - Hypophagia [Fatal]
  - Malignant neoplasm progression [Fatal]
  - Off label use [Unknown]
  - Weight decreased [Unknown]
